FAERS Safety Report 19233954 (Version 1)
Quarter: 2021Q2

REPORT INFORMATION
  Report Type: Spontaneous
  Country: US (occurrence: US)
  Receive Date: 20210508
  Receipt Date: 20210508
  Transmission Date: 20210717
  Serious: No
  Sender: FDA-Public Use
  Company Number: US-ORGANON-O2104USA002549

PATIENT
  Age: 27 Year
  Sex: Female
  Weight: 76.19 kg

DRUGS (3)
  1. PRILOSEC [Concomitant]
     Active Substance: OMEPRAZOLE MAGNESIUM
     Dosage: UNK
  2. NEXPLANON [Suspect]
     Active Substance: ETONOGESTREL
     Indication: CONTRACEPTION
     Dosage: 1 IMPLANT, LEFT ARM
     Route: 059
     Dates: start: 201809
  3. NP THYROID [Concomitant]
     Active Substance: LEVOTHYROXINE\LIOTHYRONINE
     Dosage: UNK

REACTIONS (6)
  - Vaginal haemorrhage [Not Recovered/Not Resolved]
  - Foot fracture [Unknown]
  - Abdominal pain lower [Not Recovered/Not Resolved]
  - Hand fracture [Unknown]
  - Fibula fracture [Unknown]
  - Dizziness [Unknown]

NARRATIVE: CASE EVENT DATE: 2020
